FAERS Safety Report 23522649 (Version 1)
Quarter: 2024Q1

REPORT INFORMATION
  Report Type: Spontaneous
  Country: JP (occurrence: JP)
  Receive Date: 20240214
  Receipt Date: 20240214
  Transmission Date: 20240410
  Serious: Yes (Death, Life-Threatening)
  Sender: FDA-Public Use
  Company Number: JP-PFIZER INC-PV202400020695

PATIENT
  Age: 77 Year
  Sex: Female
  Weight: 48 kg

DRUGS (11)
  1. AZULFIDINE EN-TABS [Suspect]
     Active Substance: SULFASALAZINE
     Indication: Arthralgia
     Dosage: 250 MG/12 HOURS
     Route: 048
     Dates: start: 20231212, end: 20231228
  2. AZULFIDINE EN-TABS [Suspect]
     Active Substance: SULFASALAZINE
     Indication: Rheumatoid arthritis
  3. METHYLCOBALAMIN [Suspect]
     Active Substance: METHYLCOBALAMIN
     Dosage: 1 DF/8 HOURS
     Route: 048
  4. CRESTOR [Suspect]
     Active Substance: ROSUVASTATIN CALCIUM
     Dosage: 1 DF, DAILY
     Route: 048
  5. NEXIUM [Suspect]
     Active Substance: ESOMEPRAZOLE MAGNESIUM
     Dosage: 1 DF, DAILY
     Route: 048
  6. ASPIRIN [Suspect]
     Active Substance: ASPIRIN
     Dosage: 1 DF, DAILY
     Route: 048
  7. EVOXAC [Concomitant]
     Active Substance: CEVIMELINE HYDROCHLORIDE
     Dosage: UNK
  8. ESOMEPRAZOLE MAGNESIUM [Concomitant]
     Active Substance: ESOMEPRAZOLE\ESOMEPRAZOLE MAGNESIUM\ESOMEPRAZOLE MAGNESIUM DIHYDRATE
     Dosage: UNK
  9. AMLODIPINE [Concomitant]
     Active Substance: AMLODIPINE BESYLATE
     Dosage: UNK
  10. NICORANDIL [Concomitant]
     Active Substance: NICORANDIL
     Dosage: UNK
  11. METHYLCOBALAMIN [Concomitant]
     Active Substance: METHYLCOBALAMIN
     Dosage: UNK

REACTIONS (3)
  - Toxic epidermal necrolysis [Fatal]
  - Hepatic enzyme increased [Recovering/Resolving]
  - Diarrhoea [Recovering/Resolving]

NARRATIVE: CASE EVENT DATE: 20231225
